FAERS Safety Report 8425799 (Version 10)
Quarter: 2013Q3

REPORT INFORMATION
  Report Type: Spontaneous
  Country: US (occurrence: US)
  Receive Date: 20120224
  Receipt Date: 20130702
  Transmission Date: 20140515
  Serious: Yes (Hospitalization, Other)
  Sender: FDA-Public Use
  Company Number: US-PFIZER INC-2012047017

PATIENT
  Age: 57 Year
  Sex: Female
  Weight: 86.17 kg

DRUGS (12)
  1. LYRICA [Suspect]
     Indication: FIBROMYALGIA
     Dosage: 200 MG, 3X/DAY
     Route: 048
     Dates: start: 201208, end: 201210
  2. LYRICA [Suspect]
     Dosage: 200 MG, 2X/DAY
     Route: 048
     Dates: start: 201211, end: 201211
  3. LYRICA [Suspect]
     Dosage: 100 MG, 2X/DAY
     Route: 048
     Dates: start: 201211
  4. LYRICA [Suspect]
     Dosage: 200 MG, 3X/DAY
     Route: 048
     Dates: start: 2012, end: 201304
  5. ALEVE [Suspect]
     Indication: PAIN
     Dosage: 400 MG, EVERY 6 HOURS
     Route: 048
     Dates: start: 20121018
  6. NORVASC [Concomitant]
     Indication: HYPERTENSION
     Dosage: 10 MG, DAILY
  7. PRILOSEC [Concomitant]
     Indication: GASTRIC DISORDER
     Dosage: 20 MG, 2X/DAY
  8. FOLIC ACID [Concomitant]
     Dosage: 1 MG, DAILY
  9. SYNTHROID [Concomitant]
     Indication: HYPOTHYROIDISM
     Dosage: 75 UG, DAILY
  10. VITAMIN B12 [Concomitant]
     Dosage: UNK, MONTHLY
  11. PROTONIX [Concomitant]
     Indication: GASTROOESOPHAGEAL REFLUX DISEASE
     Dosage: UNK
  12. AMBIEN [Concomitant]
     Dosage: UNK

REACTIONS (22)
  - Fall [Unknown]
  - Fall [Unknown]
  - Chills [Unknown]
  - Fall [Unknown]
  - Joint instability [Unknown]
  - Dyspnoea [Unknown]
  - Neuropathy peripheral [Not Recovered/Not Resolved]
  - Abasia [Unknown]
  - Chest pain [Unknown]
  - Infection [Unknown]
  - Pain [Not Recovered/Not Resolved]
  - Local swelling [Unknown]
  - Tremor [Unknown]
  - Balance disorder [Unknown]
  - Gastroenteritis viral [Not Recovered/Not Resolved]
  - Vision blurred [Not Recovered/Not Resolved]
  - Drug ineffective [Unknown]
  - Drug intolerance [Recovered/Resolved]
  - General physical health deterioration [Recovered/Resolved]
  - Agitation [Recovered/Resolved]
  - Back pain [Not Recovered/Not Resolved]
  - Pain in extremity [Not Recovered/Not Resolved]
